FAERS Safety Report 9370705 (Version 1)
Quarter: 2013Q2

REPORT INFORMATION
  Report Type: Spontaneous
  Country: US (occurrence: US)
  Receive Date: 20130626
  Receipt Date: 20130626
  Transmission Date: 20140414
  Serious: No
  Sender: FDA-Public Use
  Company Number: US-BAUSCH-BL-2013-001844

PATIENT
  Age: 75 Year
  Sex: Female

DRUGS (1)
  1. GENTAMICIN [Suspect]
     Indication: EYE DISCHARGE
     Dosage: OPHTHALMIC
     Route: 047

REACTIONS (1)
  - Drug ineffective [Unknown]
